FAERS Safety Report 16889424 (Version 1)
Quarter: 2019Q4

REPORT INFORMATION
  Report Type: Report from Study
  Country: ES (occurrence: ES)
  Receive Date: 20191007
  Receipt Date: 20191007
  Transmission Date: 20200122
  Serious: Yes (Hospitalization)
  Sender: FDA-Public Use
  Company Number: ES-ACCORD-156682

PATIENT
  Age: 80 Year
  Sex: Male
  Weight: 71 kg

DRUGS (3)
  1. ALLOPURINOL. [Suspect]
     Active Substance: ALLOPURINOL
     Indication: GOUT
     Dosage: 300MG A DAY
     Route: 048
     Dates: start: 20161129, end: 20161212
  2. COLCHICINE. [Concomitant]
     Active Substance: COLCHICINE
     Indication: GOUT
     Dosage: 1MG/24 HOURS
     Route: 048
     Dates: start: 20161128, end: 20161212
  3. CEFIXIME. [Concomitant]
     Active Substance: CEFIXIME
     Indication: CHRONIC OBSTRUCTIVE PULMONARY DISEASE
     Dosage: 400MG
     Route: 048
     Dates: start: 20161214, end: 20161223

REACTIONS (2)
  - Drug reaction with eosinophilia and systemic symptoms [Recovered/Resolved]
  - Acute kidney injury [Recovered/Resolved]

NARRATIVE: CASE EVENT DATE: 20161215
